FAERS Safety Report 21015919 (Version 1)
Quarter: 2022Q2

REPORT INFORMATION
  Report Type: Spontaneous
  Country: CH (occurrence: CH)
  Receive Date: 20220628
  Receipt Date: 20220628
  Transmission Date: 20220721
  Serious: Yes (Other)
  Sender: FDA-Public Use
  Company Number: CH-MLMSERVICE-2022061036089321

PATIENT
  Age: 84 Year
  Sex: Female

DRUGS (2)
  1. CARBOPLATIN [Suspect]
     Active Substance: CARBOPLATIN
     Indication: Endometrial cancer stage III
     Dosage: DOSE-REDUCED, 3 WEEKLY
     Dates: start: 202002, end: 2020
  2. PACLITAXEL [Suspect]
     Active Substance: PACLITAXEL
     Indication: Metastases to muscle
     Dosage: DOSE-REDUCED, 3 WEEKLY, 70% OF 175 MG/M2
     Dates: start: 202002, end: 2020

REACTIONS (3)
  - Ototoxicity [Unknown]
  - Paraesthesia [Unknown]
  - Off label use [Unknown]

NARRATIVE: CASE EVENT DATE: 20200101
